FAERS Safety Report 6035675-7 (Version None)
Quarter: 2009Q1

REPORT INFORMATION
  Report Type: 
  Country: None (occurrence: None)
  Receive Date: 20090112
  Receipt Date: 20090112
  Transmission Date: 20090719
  Serious: Yes (Other)
  Sender: FDA-Public Use
  Company Number: None

PATIENT
  Age: 50 Year
  Sex: Female
  Weight: 136.0791 kg

DRUGS (2)
  1. MIRENA [Suspect]
     Indication: CONTRACEPTION
     Dosage: THREE YEARS TO 2009
     Dates: start: 20060714, end: 20080130
  2. MIRENA [Suspect]
     Indication: MENORRHAGIA
     Dosage: THREE YEARS TO 2009
     Dates: start: 20060714, end: 20080130

REACTIONS (21)
  - ACNE [None]
  - ALOPECIA [None]
  - AMENORRHOEA [None]
  - BLOOD GLUCOSE ABNORMAL [None]
  - CHILLS [None]
  - CHROMATURIA [None]
  - CONTUSION [None]
  - DIZZINESS [None]
  - FLUID RETENTION [None]
  - FURUNCLE [None]
  - HYPERTENSION [None]
  - INSOMNIA [None]
  - IUCD COMPLICATION [None]
  - MOOD ALTERED [None]
  - NAUSEA [None]
  - SKIN DISCOLOURATION [None]
  - STAPHYLOCOCCAL INFECTION [None]
  - VAGINAL DISCHARGE [None]
  - VAGINAL SWELLING [None]
  - VULVOVAGINAL PRURITUS [None]
  - WEIGHT INCREASED [None]
